FAERS Safety Report 10205071 (Version 1)
Quarter: 2014Q2

REPORT INFORMATION
  Report Type: Report from Study
  Country: US (occurrence: US)
  Receive Date: 20140529
  Receipt Date: 20140529
  Transmission Date: 20141212
  Serious: Yes (Hospitalization)
  Sender: FDA-Public Use
  Company Number: PHEH2014US010793

PATIENT
  Age: 26 Year
  Sex: Female

DRUGS (1)
  1. TOBI [Suspect]
     Indication: CYSTIC FIBROSIS
     Dosage: 300 MG/5 ML
     Route: 055
     Dates: start: 201012

REACTIONS (2)
  - Condition aggravated [Recovered/Resolved]
  - Cystic fibrosis [Recovered/Resolved]
